FAERS Safety Report 24158232 (Version 1)
Quarter: 2024Q3

REPORT INFORMATION
  Report Type: Spontaneous
  Country: US (occurrence: None)
  Receive Date: 20240731
  Receipt Date: 20240731
  Transmission Date: 20241017
  Serious: Yes (Hospitalization)
  Sender: Public
  Company Number: None

PATIENT
  Age: 58 Year
  Sex: Male
  Weight: 77.5 kg

DRUGS (1)
  1. HECTOROL [Suspect]
     Active Substance: DOXERCALCIFEROL
     Indication: Hyperparathyroidism
     Dosage: 2 UG/KG MICROGRAM(S) / KILOGRAM 3 TIMES A WEEK INTRAVENOUS BOLUS
     Route: 040
     Dates: start: 20240720, end: 20240723

REACTIONS (5)
  - Blood pressure decreased [None]
  - Respiratory arrest [None]
  - Unresponsive to stimuli [None]
  - Pulse absent [None]
  - Hypersensitivity [None]

NARRATIVE: CASE EVENT DATE: 20240723
